FAERS Safety Report 10660144 (Version 4)
Quarter: 2015Q1

REPORT INFORMATION
  Report Type: Spontaneous
  Country: US (occurrence: US)
  Receive Date: 20141217
  Receipt Date: 20150122
  Transmission Date: 20150720
  Serious: Yes (Life-Threatening, Hospitalization, Disabling, Other)
  Sender: FDA-Public Use
  Company Number: US-MERCK-1412USA006655

PATIENT
  Age: 67 Year
  Sex: Male

DRUGS (3)
  1. KEYTRUDA [Suspect]
     Active Substance: PEMBROLIZUMAB
     Indication: METASTASES TO LUNG
  2. KEYTRUDA [Suspect]
     Active Substance: PEMBROLIZUMAB
     Indication: METASTASES TO LYMPH NODES
  3. KEYTRUDA [Suspect]
     Active Substance: PEMBROLIZUMAB
     Indication: METASTATIC MALIGNANT MELANOMA
     Dosage: 130 MG, ONCE
     Route: 042
     Dates: start: 20141014, end: 20141014

REACTIONS (4)
  - Dyspnoea [Unknown]
  - Fatigue [Unknown]
  - Haemolytic anaemia [Unknown]
  - Acquired haemophilia with anti FVIII, XI, or XIII [Unknown]

NARRATIVE: CASE EVENT DATE: 2014
